FAERS Safety Report 6313337-6 (Version None)
Quarter: 2009Q3

REPORT INFORMATION
  Report Type: 
  Country: None (occurrence: None)
  Receive Date: 20090818
  Receipt Date: 20090810
  Transmission Date: 20100115
  Serious: Yes (Other)
  Sender: FDA-Public Use
  Company Number: B0588966A

PATIENT
  Age: 39 Year
  Sex: Female

DRUGS (1)
  1. SERETIDE [Suspect]
     Indication: ASTHMA
     Route: 048
     Dates: start: 20090807, end: 20090807

REACTIONS (3)
  - ASTHMATIC CRISIS [None]
  - PALMAR ERYTHEMA [None]
  - PRURITUS [None]
